FAERS Safety Report 8771689 (Version 1)
Quarter: 2012Q4

REPORT INFORMATION
  Report Type: Report from Study
  Country: US (occurrence: US)
  Receive Date: 20120905
  Receipt Date: 20120905
  Transmission Date: 20130627
  Serious: Yes (Hospitalization)
  Sender: FDA-Public Use
  Company Number: US-ROCHE-1112493

PATIENT
  Sex: Male
  Weight: 86.26 kg

DRUGS (4)
  1. OMALIZUMAB [Suspect]
     Indication: ASTHMA
     Dosage: 3 injection
     Route: 058
     Dates: start: 201102, end: 201202
  2. ALLEGRA [Concomitant]
  3. ALBUTEROL [Concomitant]
  4. IPRATROPIUM [Concomitant]

REACTIONS (1)
  - Respiratory rate decreased [Recovered/Resolved]
